FAERS Safety Report 4320492-6 (Version None)
Quarter: 2004Q1

REPORT INFORMATION
  Report Type: 
  Country: None (occurrence: None)
  Receive Date: 20040319
  Receipt Date: 20040319
  Transmission Date: 20041129
  Serious: Yes (Death)
  Sender: FDA-Public Use
  Company Number: None

PATIENT
  Sex: Male

DRUGS (5)
  1. RETAVASE  2 X 10 UNITS CENTOCOR [Suspect]
     Indication: MYOCARDIAL INFARCTION
     Dosage: SEE IMAGE
     Dates: start: 20040308, end: 20040309
  2. NITROGLYCERIN [Concomitant]
  3. MORPHINE [Concomitant]
  4. HEPARIN [Concomitant]
  5. ASPIRIN [Concomitant]

REACTIONS (2)
  - BRAIN STEM HAEMORRHAGE [None]
  - HAEMORRHAGE INTRACRANIAL [None]
